FAERS Safety Report 4292221-6 (Version None)
Quarter: 2004Q1

REPORT INFORMATION
  Report Type: 
  Country: None (occurrence: None)
  Receive Date: 20040126
  Receipt Date: 20030828
  Transmission Date: 20041129
  Serious: Yes (Other)
  Sender: FDA-Public Use
  Company Number: USA030843672

PATIENT
  Age: 55 Year
  Sex: Female

DRUGS (7)
  1. FORTEO [Suspect]
     Indication: OSTEOPOROSIS
     Dosage: 20 UG/DAY
     Dates: start: 20030717, end: 20030721
  2. CALCIUM [Concomitant]
  3. MAGNESIUM [Concomitant]
  4. MULTIVITAMIN WITH SELENIUM [Concomitant]
  5. ACIPHEX [Concomitant]
  6. ADVAIR DISKUS 100/50 [Concomitant]
  7. VENTOLIN [Concomitant]

REACTIONS (2)
  - DIZZINESS [None]
  - LOSS OF CONSCIOUSNESS [None]
